FAERS Safety Report 6820823-9 (Version None)
Quarter: 2010Q3

REPORT INFORMATION
  Report Type: 
  Country: None (occurrence: None)
  Receive Date: 20100707
  Receipt Date: 20070730
  Transmission Date: 20110219
  Serious: No
  Sender: FDA-Public Use
  Company Number: US-PFIZER INC-2007063319

PATIENT
  Sex: Male
  Weight: 99.1 kg

DRUGS (7)
  1. ZOLOFT [Suspect]
     Indication: DEPRESSION
     Route: 048
     Dates: start: 20051101
  2. HYDROCODONE BITARTRATE [Concomitant]
  3. BUPRENORPHINE HCL AND NALOXONE HCL [Concomitant]
  4. LEXAPRO [Concomitant]
  5. AMBIEN [Concomitant]
  6. TYLENOL [Concomitant]
  7. KETOROLAC TROMETHAMINE [Concomitant]

REACTIONS (1)
  - DRUG SCREEN FALSE POSITIVE [None]
